FAERS Safety Report 5808936-1 (Version None)
Quarter: 2008Q3

REPORT INFORMATION
  Report Type: 
  Country: None (occurrence: None)
  Receive Date: 20080714
  Receipt Date: 20080701
  Transmission Date: 20090109
  Serious: Yes (Other)
  Sender: FDA-Public Use
  Company Number: ZA-ROCHE-566967

PATIENT
  Age: 14 Year
  Sex: Male

DRUGS (3)
  1. ISOTRETINOIN [Suspect]
     Indication: ACNE
     Dosage: STRENGTH: 60 MG; DOSAGE: DAILY IN DIVIDE
     Route: 048
     Dates: start: 20070703, end: 20070901
  2. ISOTRETINOIN [Suspect]
     Dosage: STRENGTH: 40 MG; DOSAGE: DAILY IN DIVIDE
     Route: 048
     Dates: start: 20071001, end: 20080301
  3. ISOTRETINOIN [Suspect]
     Dosage: STRENGTH: 20 MG; TAKEN DAILY
     Route: 048
     Dates: start: 20080401, end: 20080501

REACTIONS (5)
  - AGGRESSION [None]
  - BLOOD URIC ACID INCREASED [None]
  - IRRITABILITY [None]
  - LIPIDS INCREASED [None]
  - SKIN STRIAE [None]
